FAERS Safety Report 4696080-9 (Version None)
Quarter: 2005Q2

REPORT INFORMATION
  Report Type: 
  Country: None (occurrence: None)
  Receive Date: 20050621
  Receipt Date: 20050610
  Transmission Date: 20051028
  Serious: Yes (Hospitalization)
  Sender: FDA-Public Use
  Company Number: IT-ROCHE-407376

PATIENT
  Age: 51 Year
  Sex: Male
  Weight: 61 kg

DRUGS (6)
  1. CAPECITABINE [Suspect]
     Route: 048
  2. BEVACIZUMAB [Suspect]
     Route: 042
     Dates: start: 20050603, end: 20050610
  3. IRINOTECAN [Suspect]
     Route: 042
  4. PANTOPRAZOLE [Concomitant]
     Dates: start: 20050603
  5. DESAMETASONE [Concomitant]
     Dates: start: 20050606
  6. METOCLOPRAMIDE [Concomitant]
     Dates: start: 20050606

REACTIONS (6)
  - ACUTE ABDOMEN [None]
  - DEHYDRATION [None]
  - FLUID INTAKE REDUCED [None]
  - INTESTINAL OBSTRUCTION [None]
  - NAUSEA [None]
  - VOMITING [None]
